FAERS Safety Report 20807779 (Version 1)
Quarter: 2022Q2

REPORT INFORMATION
  Report Type: Spontaneous
  Country: US (occurrence: US)
  Receive Date: 20220510
  Receipt Date: 20220510
  Transmission Date: 20220721
  Serious: No
  Sender: FDA-Public Use
  Company Number: US-drreddys-SPO/USA/22/0149622

PATIENT
  Age: 59 Year
  Sex: Female

DRUGS (16)
  1. PANTOPRAZOLE SODIUM [Suspect]
     Active Substance: PANTOPRAZOLE SODIUM
     Indication: Product used for unknown indication
  2. HYDROXYZINE HYDROCHLORIDE [Concomitant]
     Active Substance: HYDROXYZINE HYDROCHLORIDE
     Indication: Product used for unknown indication
     Route: 048
     Dates: start: 20171109, end: 20190307
  3. AZITHROMYCIN [Concomitant]
     Active Substance: AZITHROMYCIN
     Indication: Product used for unknown indication
     Dosage: TAKE 2 TABLET BY ORAL ROUTE EVERY DAY FOR 1 DAY THEN 1 TABLET DAILY
     Route: 048
     Dates: start: 201910
  4. AZITHROMYCIN [Concomitant]
     Active Substance: AZITHROMYCIN
     Dosage: TAKE 2 TABLET BY ORAL ROUTE EVERY DAY FOR 1 DAY THEN 1 TABLET DAILY
     Route: 048
     Dates: end: 20200317
  5. AZITHROMYCIN [Concomitant]
     Active Substance: AZITHROMYCIN
     Dosage: TAKE 2 TABLET BY ORAL ROUTE EVERY DAY FOR 1 DAY THEN 1 TABLET DAILY
     Route: 048
     Dates: start: 20190307
  6. AZITHROMYCIN [Concomitant]
     Active Substance: AZITHROMYCIN
     Dosage: TAKE 2 TABLET BY ORAL ROUTE EVERY DAY FOR 1 DAY THEN 1 TABLET DAILY
     Route: 048
     Dates: end: 20190426
  7. AZITHROMYCIN [Concomitant]
     Active Substance: AZITHROMYCIN
     Dosage: TAKE 2 TABLET BY ORAL ROUTE EVERY DAY FOR 1 DAY THEN 1 TABLET DAILY
     Route: 048
     Dates: start: 20190116
  8. AZITHROMYCIN [Concomitant]
     Active Substance: AZITHROMYCIN
     Dosage: TAKE 2 TABLET BY ORAL ROUTE EVERY DAY FOR 1 DAY THEN 1 TABLET DAILY
     Route: 048
     Dates: end: 20190307
  9. AZITHROMYCIN [Concomitant]
     Active Substance: AZITHROMYCIN
     Dosage: TAKE 2 TABLET BY ORAL ROUTE EVERY DAY FOR 1 DAY THEN 1 TABLET DAILY
     Route: 048
     Dates: start: 20171222
  10. AZITHROMYCIN [Concomitant]
     Active Substance: AZITHROMYCIN
     Dosage: TAKE 2 TABLET BY ORAL ROUTE EVERY DAY FOR 1 DAY THEN 1 TABLET DAILY
     Route: 048
     Dates: end: 20190116
  11. MEDROL [Concomitant]
     Active Substance: METHYLPREDNISOLONE
     Indication: Product used for unknown indication
     Route: 048
     Dates: start: 20190616, end: 20200317
  12. BENZONATATE [Concomitant]
     Active Substance: BENZONATATE
     Indication: Cough
     Route: 048
     Dates: start: 20190307, end: 20200317
  13. BENZONATATE [Concomitant]
     Active Substance: BENZONATATE
     Indication: Cough
     Route: 048
     Dates: start: 20190307, end: 20190307
  14. METHYLPREDNISOLONE [Concomitant]
     Active Substance: METHYLPREDNISOLONE
     Indication: Product used for unknown indication
     Route: 048
     Dates: start: 20190308, end: 20200317
  15. ZITHROMAX [Concomitant]
     Active Substance: AZITHROMYCIN DIHYDRATE
     Indication: Product used for unknown indication
     Dosage: TAKE 2 TABLET BY ORAL ROUTE EVERY DAY FOR 1 DAY THEN 1 TABLET BY ORAL ROUTE DAILY FOR 4 DAYS.
     Route: 048
     Dates: start: 20200312
  16. ZITHROMAX [Concomitant]
     Active Substance: AZITHROMYCIN DIHYDRATE
     Dosage: TAKE 2 TABLET BY ORAL ROUTE EVERY DAY FOR 1 DAY THEN 1 TABLET BY ORAL ROUTE DAILY FOR 4 DAYS.
     Route: 048
     Dates: end: 20200316

REACTIONS (2)
  - Heart rate increased [Unknown]
  - Abdominal pain [Unknown]
